FAERS Safety Report 4845130-5 (Version None)
Quarter: 2005Q4

REPORT INFORMATION
  Report Type: 
  Country: None (occurrence: None)
  Receive Date: 20051125
  Receipt Date: 20051115
  Transmission Date: 20060501
  Serious: Yes (Other)
  Sender: FDA-Public Use
  Company Number: 2005141699

PATIENT
  Age: 82 Year
  Sex: Female

DRUGS (7)
  1. ZYRTEC [Suspect]
     Indication: RASH
     Dosage: 10 MG (10 MG, 1 IN 1 D)
     Dates: start: 20050422
  2. ALLEGRA [Suspect]
     Indication: RASH
     Dosage: 180 MG (180 MG, 1 IN 1 D)
     Dates: start: 20050422, end: 20050615
  3. DEXCCHLORPHENIRAMINE (DEXCHLORPHENIRAMINE) [Suspect]
     Indication: ILL-DEFINED DISORDER
  4. LEVOXYL [Concomitant]
  5. ENALAPRIL [Concomitant]
  6. ZETTA (EZETIMIBE) [Concomitant]
  7. CARDIZAM (DILTIAZEM HYDROCHLORIDE) [Concomitant]

REACTIONS (7)
  - CONTUSION [None]
  - DIZZINESS [None]
  - FALL [None]
  - FOOT FRACTURE [None]
  - HALLUCINATION [None]
  - SKELETAL INJURY [None]
  - UNEVALUABLE EVENT [None]
